FAERS Safety Report 7375311-0 (Version None)
Quarter: 2011Q1

REPORT INFORMATION
  Report Type: 
  Country: None (occurrence: None)
  Receive Date: 20110325
  Receipt Date: 20110314
  Transmission Date: 20110831
  Serious: Yes (Other)
  Sender: FDA-Public Use
  Company Number: GR-ACTELION-A-CH2009-24386

PATIENT
  Sex: Female
  Weight: 56 kg

DRUGS (7)
  1. DEFERIPRONE [Concomitant]
  2. TRACLEER [Suspect]
     Indication: PULMONARY ARTERIAL HYPERTENSION
     Dosage: 125 MG, BID
     Route: 048
     Dates: start: 20080729, end: 20090313
  3. THYROHORMONE [Concomitant]
  4. ONEALFA [Concomitant]
  5. DEFEROXAMINE MESYLATE [Concomitant]
  6. L-CARNITINE [Concomitant]
  7. SALOSPIR [Concomitant]

REACTIONS (5)
  - NORMAL NEWBORN [None]
  - PREGNANCY [None]
  - CAESAREAN SECTION [None]
  - BREAST FEEDING [None]
  - PREMATURE BABY [None]
